FAERS Safety Report 19028382 (Version 1)
Quarter: 2021Q1

REPORT INFORMATION
  Report Type: Spontaneous
  Country: DE (occurrence: DE)
  Receive Date: 20210319
  Receipt Date: 20210319
  Transmission Date: 20210420
  Serious: Yes (Hospitalization, Other)
  Sender: FDA-Public Use
  Company Number: DE-TEVA-2021-DE-1890936

PATIENT
  Age: 73 Year
  Sex: Male

DRUGS (7)
  1. OMEPRAZOL [Concomitant]
     Active Substance: OMEPRAZOLE
     Dosage: 20 MILLIGRAM DAILY; 20 MG, 1?0?0?0
  2. ASS 100 [Suspect]
     Active Substance: ASPIRIN
     Dosage: 100 MILLIGRAM DAILY; 1?0?0?0
  3. METHOTREXAT [Suspect]
     Active Substance: METHOTREXATE
     Dosage: 10 MG, LAST ON 11?12?2020
  4. ELIGARD [Suspect]
     Active Substance: LEUPROLIDE ACETATE
     Dosage: 22.5 MG
     Route: 058
  5. METOPROLOL. [Concomitant]
     Active Substance: METOPROLOL
     Dosage: 47.5 MILLIGRAM DAILY; 23.75 MG, 1?0?1?0
  6. ATORVASTATIN [Concomitant]
     Active Substance: ATORVASTATIN
     Dosage: 40 MILLIGRAM DAILY; 40 MG, 0?0?1?0
  7. TERBINAFIN [Suspect]
     Active Substance: TERBINAFINE
     Dosage: 125 MILLIGRAM DAILY; 0?0?1?0

REACTIONS (5)
  - Decreased appetite [Unknown]
  - Tongue discomfort [Unknown]
  - Product prescribing error [Unknown]
  - Pancytopenia [Unknown]
  - Epistaxis [Unknown]
